FAERS Safety Report 4644258-2 (Version None)
Quarter: 2005Q2

REPORT INFORMATION
  Report Type: 
  Country: None (occurrence: None)
  Receive Date: 20050331
  Receipt Date: 20041230
  Transmission Date: 20051028
  Serious: No
  Sender: FDA-Public Use
  Company Number: 05P-163-0285299-00

PATIENT
  Age: 79 Year
  Sex: Female
  Weight: 58.9676 kg

DRUGS (8)
  1. HUMIRA [Suspect]
     Indication: RHEUMATOID ARTHRITIS
     Dosage: 40 MG, 1 IN 2 WK, SUBCUTANEOUS;  40 MG, 1 IN 2 WK, SUBCUTANEOUS
     Route: 058
     Dates: start: 20040101, end: 20040701
  2. HUMIRA [Suspect]
     Indication: RHEUMATOID ARTHRITIS
     Dosage: 40 MG, 1 IN 2 WK, SUBCUTANEOUS;  40 MG, 1 IN 2 WK, SUBCUTANEOUS
     Route: 058
     Dates: start: 20040801
  3. METHOTREXATE SODIUM [Concomitant]
  4. HYDROXYCHLOROQUINE PHOSPHATE [Concomitant]
  5. ALENDRONATE SODIUM [Concomitant]
  6. FOLIC ACID [Concomitant]
  7. PEROGESIC [Concomitant]
  8. PARACETAMOL [Concomitant]

REACTIONS (6)
  - APHTHOUS STOMATITIS [None]
  - CARPAL TUNNEL SYNDROME [None]
  - COUGH [None]
  - DRY THROAT [None]
  - HERPES SIMPLEX [None]
  - PNEUMONIA [None]
